FAERS Safety Report 4568595-5 (Version None)
Quarter: 2005Q1

REPORT INFORMATION
  Report Type: 
  Country: None (occurrence: None)
  Receive Date: 20050202
  Receipt Date: 20041209
  Transmission Date: 20050727
  Serious: Yes (Death)
  Sender: FDA-Public Use
  Company Number: IT-ABBOTT-04P-083-0282811-00

PATIENT
  Sex: Female
  Weight: 64 kg

DRUGS (7)
  1. SIMDAX [Suspect]
     Indication: CARDIAC FAILURE CONGESTIVE
     Route: 042
  2. SPIRONOLACTONE [Concomitant]
     Indication: CARDIAC FAILURE
     Dates: start: 20040801, end: 20041130
  3. BISOPROLOL FUMARATE [Concomitant]
     Indication: CARDIAC FAILURE
     Dates: start: 20040801, end: 20041130
  4. ACETYLSALICYLIC ACID SRT [Concomitant]
     Indication: MYOCARDIAL INFARCTION
     Dates: start: 20041125, end: 20041130
  5. ENOXAPARIN SODIUM [Concomitant]
     Indication: MYOCARDIAL INFARCTION
     Dates: start: 20041101, end: 20041130
  6. DIGOSSINE [Concomitant]
     Indication: ATRIAL FIBRILLATION
     Dates: start: 20000101, end: 20041115
  7. FUROSEMIDE [Concomitant]
     Indication: CARDIAC FAILURE
     Dates: start: 20040801, end: 20041130

REACTIONS (2)
  - MULTI-ORGAN FAILURE [None]
  - MYOCARDIAL INFARCTION [None]
